FAERS Safety Report 24399734 (Version 1)
Quarter: 2024Q4

REPORT INFORMATION
  Report Type: Spontaneous
  Country: DE (occurrence: DE)
  Receive Date: 20241005
  Receipt Date: 20241005
  Transmission Date: 20250114
  Serious: Yes (Death, Life-Threatening, Hospitalization, Disabling, Other)
  Sender: AUROBINDO
  Company Number: DE-SANDOZ-SDZ2024DE075548

PATIENT
  Age: 80 Year
  Sex: Male
  Weight: 69 kg

DRUGS (51)
  1. HYDROCORTISONE [Suspect]
     Active Substance: HYDROCORTISONE
     Indication: Angioedema
     Dosage: 100 MILLIGRAM
     Route: 065
  2. HYDROCORTISONE [Suspect]
     Active Substance: HYDROCORTISONE
     Dosage: UNK
     Route: 065
  3. GABAPENTIN [Suspect]
     Active Substance: GABAPENTIN
     Indication: Neuralgia
     Dosage: UNK
     Route: 048
  4. GABAPENTIN [Suspect]
     Active Substance: GABAPENTIN
     Indication: Off label use
     Dosage: 100 MILLIGRAM, ONCE A DAY (DOSAGE TEXT: THERAPY START DATE ASKU, THERAPY END DATE ASKU)
     Route: 048
  5. GABAPENTIN [Suspect]
     Active Substance: GABAPENTIN
     Indication: Bacterial infection
     Dosage: 10 MILLIGRAM, ONCE A DAY
     Route: 048
  6. GABAPENTIN [Suspect]
     Active Substance: GABAPENTIN
     Indication: Intentional product misuse
  7. CEFTRIAXONE [Suspect]
     Active Substance: CEFTRIAXONE
     Indication: Bacterial infection
     Dosage: UNK UNK, ONCE A DAY
     Route: 042
  8. CEFTRIAXONE [Suspect]
     Active Substance: CEFTRIAXONE
     Dosage: 2 GRAM
     Route: 042
  9. CEFTRIAXONE [Suspect]
     Active Substance: CEFTRIAXONE
     Dosage: 2 GRAM, ONCE A DAY
     Route: 042
  10. CEFTRIAXONE [Suspect]
     Active Substance: CEFTRIAXONE
     Dosage: 2 MILLIGRAM
     Route: 042
  11. CEFTRIAXONE [Suspect]
     Active Substance: CEFTRIAXONE
     Dosage: UNK
     Route: 042
  12. LANSOPRAZOLE [Suspect]
     Active Substance: LANSOPRAZOLE
     Indication: Off label use
     Dosage: UNK
     Route: 065
  13. LANSOPRAZOLE [Suspect]
     Active Substance: LANSOPRAZOLE
     Indication: Intentional product misuse
     Dosage: 30 MILLIGRAM, ONCE A DAY
     Route: 048
  14. LANSOPRAZOLE [Suspect]
     Active Substance: LANSOPRAZOLE
     Indication: Antacid therapy
  15. SIMVASTATIN [Suspect]
     Active Substance: SIMVASTATIN
     Indication: Vitamin supplementation
     Dosage: UNK
     Route: 048
  16. SIMVASTATIN [Suspect]
     Active Substance: SIMVASTATIN
     Indication: Blood cholesterol increased
     Dosage: UNK
     Route: 065
  17. SIMVASTATIN [Suspect]
     Active Substance: SIMVASTATIN
     Indication: Off label use
     Dosage: 40 MILLIGRAM, ONCE A DAY
     Route: 048
  18. ONDANSETRON [Suspect]
     Active Substance: ONDANSETRON
     Indication: Vomiting
     Dosage: UNK
     Route: 042
  19. ONDANSETRON [Suspect]
     Active Substance: ONDANSETRON
     Indication: Off label use
     Dosage: 1 DOSAGE FORM
     Route: 042
  20. ONDANSETRON [Suspect]
     Active Substance: ONDANSETRON
     Dosage: 3 DOSAGE FORM, ONCE A DAY
     Route: 042
  21. ONDANSETRON [Suspect]
     Active Substance: ONDANSETRON
     Dosage: 4 MILLIGRAM
     Route: 042
  22. ONDANSETRON [Suspect]
     Active Substance: ONDANSETRON
     Dosage: 4 MILLIGRAM, ONCE A DAY
     Route: 042
  23. ONDANSETRON [Suspect]
     Active Substance: ONDANSETRON
     Dosage: 12 MILLIGRAM, ONCE A DAY
     Route: 042
  24. ONDANSETRON [Suspect]
     Active Substance: ONDANSETRON
     Dosage: 12 MILLIGRAM
     Route: 042
  25. ONDANSETRON [Suspect]
     Active Substance: ONDANSETRON
     Dosage: 12 MILLIGRAM
     Route: 065
  26. ONDANSETRON [Suspect]
     Active Substance: ONDANSETRON
     Dosage: 24 MILLIGRAM
     Route: 065
  27. ONDANSETRON [Suspect]
     Active Substance: ONDANSETRON
     Dosage: 24 MILLIGRAM, ONCE A DAY
     Route: 042
  28. ONDANSETRON [Suspect]
     Active Substance: ONDANSETRON
     Dosage: 36 MILLIGRAM
     Route: 042
  29. ONDANSETRON [Suspect]
     Active Substance: ONDANSETRON
     Dosage: 36 MILLIGRAM, ONCE A DAY
     Route: 042
  30. ONDANSETRON [Suspect]
     Active Substance: ONDANSETRON
     Dosage: 40 MILLIGRAM
     Route: 042
  31. ONDANSETRON [Suspect]
     Active Substance: ONDANSETRON
     Dosage: 41.14 MILLIGRAM
     Route: 042
  32. AMIODARONE [Suspect]
     Active Substance: AMIODARONE
     Indication: Ventricular fibrillation
     Dosage: UNK UNK, ONCE A DAY
     Route: 065
  33. AMIODARONE [Suspect]
     Active Substance: AMIODARONE
     Indication: Drug therapy
     Dosage: UNK UNK, ONCE A DAY
     Route: 042
  34. AMIODARONE [Suspect]
     Active Substance: AMIODARONE
     Indication: Off label use
     Dosage: 150 MICROGRAM, ONCE A DAY
     Route: 042
  35. AMIODARONE [Suspect]
     Active Substance: AMIODARONE
     Indication: Intentional product misuse
     Dosage: 150 MICROGRAM, ONCE A DAY
     Route: 065
  36. AMIODARONE [Suspect]
     Active Substance: AMIODARONE
     Dosage: 150 MICROGRAM
     Route: 042
  37. HYDROMORPHONE [Suspect]
     Active Substance: HYDROMORPHONE
     Indication: Analgesic therapy
     Dosage: 250 MILLIGRAM, ONCE A DAY
     Route: 042
  38. HYDROMORPHONE [Suspect]
     Active Substance: HYDROMORPHONE
     Dosage: 24 MILLIGRAM, ONCE A DAY
     Route: 058
  39. HYDROMORPHONE [Suspect]
     Active Substance: HYDROMORPHONE
     Dosage: 1 MILLIGRAM
     Route: 058
  40. HYDROMORPHONE [Suspect]
     Active Substance: HYDROMORPHONE
     Dosage: 6 MILLIGRAM
     Route: 058
  41. METAMIZOLE SODIUM [Suspect]
     Active Substance: METAMIZOLE SODIUM
     Indication: Intentional product misuse
     Dosage: 5 MILLIGRAM, ONCE A DAY
     Route: 042
  42. METAMIZOLE SODIUM [Suspect]
     Active Substance: METAMIZOLE SODIUM
     Indication: Vitamin supplementation
  43. ALBUTEROL [Suspect]
     Active Substance: ALBUTEROL
     Indication: Thrombosis
     Dosage: 4 DOSAGE FORM, ONCE A DAY
     Route: 065
  44. ALBUTEROL [Suspect]
     Active Substance: ALBUTEROL
     Indication: Chronic obstructive pulmonary disease
     Dosage: 4 DOSAGE FORM, ONCE A DAY
  45. ALBUTEROL [Suspect]
     Active Substance: ALBUTEROL
     Dosage: UNK
     Route: 065
  46. ALBUTEROL [Suspect]
     Active Substance: ALBUTEROL
     Dosage: UNK
  47. ALBUTEROL [Suspect]
     Active Substance: ALBUTEROL
     Dosage: 2.5 MILLILITER
     Route: 065
  48. ALBUTEROL [Suspect]
     Active Substance: ALBUTEROL
     Dosage: 2.5 MILLILITER, ONCE A DAY
     Route: 065
  49. ALBUTEROL [Suspect]
     Active Substance: ALBUTEROL
     Dosage: 2.5 MILLILITER (PRN (4GM/100ML SOLUTION UNASSIGNED))
     Route: 065
  50. ALBUTEROL [Suspect]
     Active Substance: ALBUTEROL
     Dosage: UNK UNK, ONCE A DAY
     Route: 050
  51. XYLOMETAZOLINE [Suspect]
     Active Substance: XYLOMETAZOLINE
     Indication: Dyspnoea
     Dosage: UNK
     Route: 065

REACTIONS (9)
  - Abdominal pain [Fatal]
  - Dry mouth [Fatal]
  - Ventricular fibrillation [Fatal]
  - Constipation [Fatal]
  - Off label use [Fatal]
  - Diabetes mellitus [Fatal]
  - Hypophosphataemia [Fatal]
  - Iron deficiency [Fatal]
  - Bacterial infection [Fatal]
